FAERS Safety Report 11064202 (Version 1)
Quarter: 2015Q2

REPORT INFORMATION
  Report Type: Spontaneous
  Country: FR (occurrence: FR)
  Receive Date: 20150424
  Receipt Date: 20150424
  Transmission Date: 20150821
  Serious: Yes (Hospitalization)
  Sender: FDA-Public Use
  Company Number: FR-PFIZER INC-2015133830

PATIENT
  Age: 47 Year
  Sex: Male

DRUGS (7)
  1. PREVISCAN (PENTOXIFYLLINE) [Interacting]
     Active Substance: PENTOXIFYLLINE
     Indication: ARRHYTHMIA
     Dosage: 20 MG, 1X/DAY
     Route: 048
     Dates: start: 2009, end: 20141217
  2. ZANIDIP [Concomitant]
     Active Substance: LERCANIDIPINE HYDROCHLORIDE
     Dosage: 10
  3. ALLOPURINOL. [Interacting]
     Active Substance: ALLOPURINOL
     Indication: HYPERURICAEMIA
     Dosage: 1 DF, ^200,^ 1X/DAY
     Route: 048
  4. TENORMIN [Concomitant]
     Active Substance: ATENOLOL
     Dosage: 100
  5. HEMIGOXINE [Concomitant]
     Active Substance: DIGOXIN
     Dosage: UNK
     Dates: end: 20141217
  6. TAHOR [Suspect]
     Active Substance: ATORVASTATIN CALCIUM
     Indication: HYPERCHOLESTEROLAEMIA
     Dosage: 20 MG, 1X/DAY
     Route: 048
  7. COTAREG [Concomitant]
     Active Substance: HYDROCHLOROTHIAZIDE\VALSARTAN
     Dosage: 160/25

REACTIONS (6)
  - International normalised ratio increased [Recovered/Resolved]
  - Acute kidney injury [Unknown]
  - Hepatocellular injury [Recovered/Resolved]
  - Drug interaction [Recovered/Resolved]
  - Hyponatraemia [Unknown]
  - Rectal haemorrhage [Recovered/Resolved]

NARRATIVE: CASE EVENT DATE: 201412
